FAERS Safety Report 12920569 (Version 1)
Quarter: 2016Q4

REPORT INFORMATION
  Report Type: Spontaneous
  Country: GR (occurrence: GR)
  Receive Date: 20161108
  Receipt Date: 20161108
  Transmission Date: 20170207
  Serious: Yes (Other)
  Sender: FDA-Public Use
  Company Number: PHHY2016GR150883

PATIENT
  Age: 69 Year
  Sex: Female

DRUGS (1)
  1. XOTERNA BREEZHALER [Suspect]
     Active Substance: GLYCOPYRRONIUM\INDACATEROL
     Indication: CHRONIC OBSTRUCTIVE PULMONARY DISEASE
     Dosage: UNK
     Route: 065

REACTIONS (4)
  - Oesophageal pain [Recovering/Resolving]
  - Pollakiuria [Recovering/Resolving]
  - Ischaemia [Recovering/Resolving]
  - Dysphagia [Recovering/Resolving]
